FAERS Safety Report 14360138 (Version 1)
Quarter: 2018Q1

REPORT INFORMATION
  Report Type: Spontaneous
  Country: FI (occurrence: FI)
  Receive Date: 20180106
  Receipt Date: 20180106
  Transmission Date: 20180509
  Serious: Yes (Hospitalization, Other)
  Sender: FDA-Public Use
  Company Number: FI-AUROBINDO-AUR-APL-2018-001001

PATIENT
  Sex: Male

DRUGS (3)
  1. LITHIUM. [Interacting]
     Active Substance: LITHIUM
     Indication: BIPOLAR I DISORDER
     Dosage: 1050 MG, UNK
     Route: 065
  2. PANACOD [Interacting]
     Active Substance: ACETAMINOPHEN\CODEINE PHOSPHATE
     Indication: BACK PAIN
     Dosage: UNK
     Route: 065
  3. OLANZAPINE. [Suspect]
     Active Substance: OLANZAPINE
     Indication: BIPOLAR I DISORDER
     Dosage: 15MG AT NIGHT
     Route: 065

REACTIONS (6)
  - Increased appetite [Unknown]
  - Intercepted drug prescribing error [Unknown]
  - Drug interaction [Unknown]
  - Intervertebral disc protrusion [Unknown]
  - Mania [Unknown]
  - Weight increased [Unknown]

NARRATIVE: CASE EVENT DATE: 201705
